FAERS Safety Report 20198472 (Version 1)
Quarter: 2021Q4

REPORT INFORMATION
  Report Type: Spontaneous
  Country: GB (occurrence: GB)
  Receive Date: 20211217
  Receipt Date: 20211217
  Transmission Date: 20220303
  Serious: Yes (Disabling, Other)
  Sender: FDA-Public Use
  Company Number: None

PATIENT
  Age: 47 Year
  Sex: Female
  Weight: 58 kg

DRUGS (3)
  1. HYDROCORTISONE [Suspect]
     Active Substance: HYDROCORTISONE
     Indication: Skin disorder
     Dosage: 2 DOSAGE FORMS DAILY; 2.5
     Route: 061
  2. ELIDEL [Suspect]
     Active Substance: PIMECROLIMUS
     Indication: Skin disorder
     Dosage: 1 DOSAGE FORMS DAILY;
     Route: 061
     Dates: start: 202103, end: 202110
  3. FLUCLOXACILLIN SODIUM [Concomitant]
     Active Substance: FLUCLOXACILLIN SODIUM

REACTIONS (7)
  - Erythema [Not Recovered/Not Resolved]
  - Swelling [Not Recovered/Not Resolved]
  - Burning sensation [Not Recovered/Not Resolved]
  - Skin weeping [Not Recovered/Not Resolved]
  - Pruritus [Not Recovered/Not Resolved]
  - Skin infection [Unknown]
  - Topical steroid withdrawal reaction [Unknown]
